FAERS Safety Report 7578083-X (Version None)
Quarter: 2011Q2

REPORT INFORMATION
  Report Type: 
  Country: None (occurrence: None)
  Receive Date: 20110628
  Receipt Date: 20110624
  Transmission Date: 20111010
  Serious: Yes (Death)
  Sender: FDA-Public Use
  Company Number: GB-ASTRAZENECA-2011SE38349

PATIENT
  Age: 34 Year

DRUGS (5)
  1. ACETAMINOPHEN [Suspect]
  2. TRAMADOL HCL [Suspect]
     Route: 048
  3. CHLORPROMAZINE [Suspect]
  4. METHADONE HCL [Suspect]
  5. QUETIAPINE [Suspect]
     Route: 048

REACTIONS (3)
  - ACCIDENTAL OVERDOSE [None]
  - RESPIRATORY DEPRESSION [None]
  - TOXICITY TO VARIOUS AGENTS [None]
